FAERS Safety Report 8889838 (Version 4)
Quarter: 2013Q1

REPORT INFORMATION
  Report Type: Report from Study
  Country: US (occurrence: US)
  Receive Date: 20121107
  Receipt Date: 20130128
  Transmission Date: 20140127
  Serious: Yes (Hospitalization)
  Sender: FDA-Public Use
  Company Number: US-009507513-1210USA013885

PATIENT
  Age: 72 Year
  Sex: Male
  Weight: 85 kg

DRUGS (38)
  1. PEGINTERFERON ALFA-2B [Suspect]
     Indication: HEPATITIS C
     Dosage: 150 MICROGRAM, QW
     Route: 058
     Dates: start: 20120719, end: 20120822
  2. PEGINTERFERON ALFA-2B [Suspect]
     Dosage: 96 MICROGRAM, QW
     Route: 058
     Dates: start: 20120823, end: 20121018
  3. RIBAVIRIN [Suspect]
     Indication: HEPATITIS C
     Dosage: 1000 MG, QD
     Route: 048
     Dates: start: 20121012, end: 20121024
  4. RIBAVIRIN [Suspect]
     Dosage: 1200 MG, QD
     Route: 048
     Dates: start: 20120719, end: 20121011
  5. BOCEPREVIR [Suspect]
     Indication: CHRONIC HEPATITIS C
     Dosage: 800 MG, TID
     Route: 048
     Dates: start: 20120817, end: 20121024
  6. TRUVADA [Concomitant]
     Dosage: 1 DF, QD
     Route: 048
     Dates: start: 20100815
  7. RALTEGRAVIR POTASSIUM [Concomitant]
     Indication: ANTIRETROVIRAL THERAPY
     Dosage: 400 MG, BID
     Route: 048
     Dates: start: 20111007
  8. ZINC CHELATE PLUS [Concomitant]
     Dosage: 50 MG, QD
     Route: 048
     Dates: start: 19540315
  9. LEVOTHROID [Concomitant]
     Dosage: 150 MICROGRAM, QAM
     Route: 048
     Dates: start: 19580915
  10. VITAMINS (UNSPECIFIED) [Concomitant]
     Dosage: 1 DF, QD
     Route: 048
     Dates: start: 19940315
  11. ACYCLOVIR [Concomitant]
     Dosage: 400 MG, BID
     Route: 048
     Dates: start: 19951117
  12. ACYCLOVIR [Concomitant]
     Dosage: 800 MG, BID
     Route: 048
     Dates: start: 20120818
  13. VITAMIN D3 STREULI [Concomitant]
     Dosage: 5000 IU QD
     Route: 048
     Dates: start: 19980701
  14. VITAMIN A [Concomitant]
     Dosage: 8000 IU, QD
     Route: 048
     Dates: start: 19980701
  15. VITAMIN B12 RATIOPHARM [Concomitant]
     Dosage: 1000 MICROGRAM, QD
     Route: 048
     Dates: start: 19980701
  16. BETA CAROTENE [Concomitant]
     Dosage: 25000 IU, QD
     Route: 048
     Dates: start: 19980701
  17. NIACIN [Concomitant]
     Dosage: 250 MG, QD
     Route: 048
     Dates: start: 20120701
  18. SELENIUM (UNSPECIFIED) [Concomitant]
     Dosage: 200 MCH, QD
     Dates: start: 19980701
  19. ACIDOPHILUS [Concomitant]
     Dosage: 1 DF, QD
     Route: 048
     Dates: start: 20020701
  20. CARNITINE [Concomitant]
     Dosage: 2 X 500 MG, QD
     Route: 048
     Dates: start: 20020701
  21. NSI ALPHA LIPOIC ACID [Concomitant]
     Dosage: 300 MG, QD
     Route: 048
     Dates: start: 20020701
  22. DT COQ [Concomitant]
     Dosage: 200 MKG, QD
     Route: 048
     Dates: start: 20020701
  23. OMEGA-3 MARINE TRIGLYCERIDES [Concomitant]
     Dosage: 1 DF, QD
     Route: 048
     Dates: start: 20030615
  24. PRILOSEC [Concomitant]
     Dosage: 20 MG, QD
     Route: 048
     Dates: start: 20031013
  25. LANTUS [Concomitant]
     Dosage: 70 UNITS, QAM AND QPM
     Route: 058
     Dates: start: 20040727
  26. NOVOLOG [Concomitant]
     Dosage: UNK, PRN
     Route: 058
     Dates: start: 20040815
  27. MAGNESIUM CITRATE [Concomitant]
     Dosage: 225 MG, QD
     Route: 048
     Dates: start: 20080701
  28. IMODIUM [Concomitant]
     Indication: DIARRHOEA
     Dosage: UNK, PRN
     Route: 048
     Dates: start: 20120115
  29. ALLEGRA [Concomitant]
     Dosage: 1 DF, HS
     Route: 048
     Dates: start: 20120115
  30. ANDROGEL [Concomitant]
     Dosage: 5 G, QD
     Route: 061
     Dates: start: 20040701
  31. LOSARTAN POTASSIUM [Concomitant]
     Dosage: 25 MG, HS
     Route: 048
     Dates: start: 20040701
  32. ADVIL [Concomitant]
     Indication: HEADACHE
     Dosage: 800 MG, PRN
     Route: 048
     Dates: start: 20120719
  33. ADVIL [Concomitant]
     Indication: PAIN
  34. PROVIGIL [Concomitant]
     Dosage: 1/2 TO 1 TABLET, QAM
     Route: 048
     Dates: start: 20120920
  35. SUDAFED [Concomitant]
     Dosage: 12 HOUR 120 MG 1 TABLET, QD
     Route: 048
     Dates: start: 20120915
  36. ROBITUSSIN WITH CODEINE [Concomitant]
     Indication: COUGH
     Dosage: 2 TABLESPOONS, PRN, QD
     Route: 048
     Dates: start: 20120915
  37. ROBITUSSIN WITH CODEINE [Concomitant]
     Indication: UPPER-AIRWAY COUGH SYNDROME
  38. MUPIROCIN [Concomitant]
     Dosage: 1 SPARY, EACH NOSTRIL, BID
     Route: 045
     Dates: start: 20121009

REACTIONS (1)
  - Pneumonia [Recovered/Resolved]
